FAERS Safety Report 15094136 (Version 1)
Quarter: 2018Q2

REPORT INFORMATION
  Report Type: Report from Study
  Country: DE (occurrence: DE)
  Receive Date: 20180630
  Receipt Date: 20180630
  Transmission Date: 20180711
  Serious: Yes (Death, Hospitalization)
  Sender: FDA-Public Use
  Company Number: DE-TEVA-2018-DE-915585

PATIENT
  Age: 63 Year
  Sex: Male

DRUGS (13)
  1. MABTHERA [Suspect]
     Active Substance: RITUXIMAB
     Indication: RHEUMATOID ARTHRITIS
     Dosage: ON 01/DEC/2015, RECEIVED LAST DOSE PRIOR TO EVENT
     Route: 042
     Dates: start: 201308
  2. MABTHERA [Suspect]
     Active Substance: RITUXIMAB
     Dosage: ON 01/DEC/2015, RECEIVED LAST DOSE PRIOR TO EVENT
     Route: 042
     Dates: start: 201409
  3. MABTHERA [Suspect]
     Active Substance: RITUXIMAB
     Dosage: ON 01/DEC/2015, RECEIVED LAST DOSE PRIOR TO EVENT
     Route: 042
     Dates: start: 201403
  4. ASPIRIN. [Concomitant]
     Active Substance: ASPIRIN
     Route: 065
  5. PREDNISOLON [Concomitant]
     Active Substance: PREDNISOLONE
     Route: 065
  6. LEFLUNOMID [Suspect]
     Active Substance: LEFLUNOMIDE
     Route: 065
  7. MABTHERA [Suspect]
     Active Substance: RITUXIMAB
     Dosage: ON 01/DEC/2015, RECEIVED LAST DOSE PRIOR TO EVENT
     Route: 042
     Dates: start: 201504
  8. NEBILET [Concomitant]
     Active Substance: NEBIVOLOL
     Route: 065
  9. DEKRISTOL [Concomitant]
     Active Substance: CHOLECALCIFEROL
     Route: 065
  10. LOSARTAN. [Concomitant]
     Active Substance: LOSARTAN
     Route: 065
  11. LEFLUNOMID [Suspect]
     Active Substance: LEFLUNOMIDE
     Indication: PRODUCT USED FOR UNKNOWN INDICATION
     Route: 065
  12. MABTHERA [Suspect]
     Active Substance: RITUXIMAB
     Dosage: ON 01/DEC/2015, RECEIVED LAST DOSE PRIOR TO EVENT
     Route: 042
     Dates: start: 201512
  13. PANTOZOL [Concomitant]
     Active Substance: PANTOPRAZOLE SODIUM
     Route: 065

REACTIONS (7)
  - Pulmonary mass [Fatal]
  - Postoperative wound infection [Fatal]
  - Pulmonary sepsis [Fatal]
  - Colon cancer metastatic [Fatal]
  - Pneumonia [Fatal]
  - Pneumonia [Fatal]
  - Colon cancer [Fatal]

NARRATIVE: CASE EVENT DATE: 201601
